FAERS Safety Report 8017375 (Version 6)
Quarter: 2012Q4

REPORT INFORMATION
  Report Type: Report from Study
  Country: US (occurrence: US)
  Receive Date: 20110630
  Receipt Date: 20121112
  Transmission Date: 20130627
  Serious: Yes (Hospitalization)
  Sender: FDA-Public Use
  Company Number: US-JNJFOC-20110611971

PATIENT
  Age: 19 Year
  Sex: Male
  Weight: 49.44 kg

DRUGS (6)
  1. REMICADE [Suspect]
     Indication: INFLAMMATORY BOWEL DISEASE
     Route: 042
     Dates: start: 20080122
  2. REMICADE [Suspect]
     Indication: INFLAMMATORY BOWEL DISEASE
     Route: 042
     Dates: start: 20060308
  3. 5-ASA [Concomitant]
     Route: 048
  4. IRON [Concomitant]
  5. BACTRIM [Concomitant]
  6. PREDNISONE [Concomitant]

REACTIONS (3)
  - Small intestinal obstruction [Recovered/Resolved]
  - Perirectal abscess [Recovered/Resolved]
  - Pelvic abscess [Recovered/Resolved]
